FAERS Safety Report 7942380-6 (Version None)
Quarter: 2011Q4

REPORT INFORMATION
  Report Type: 
  Country: None (occurrence: None)
  Receive Date: 20111128
  Receipt Date: 20111123
  Transmission Date: 20120403
  Serious: Yes (Life-Threatening)
  Sender: FDA-Public Use
  Company Number: FR-B.I. PHARMACEUTICALS,INC./RIDGEFIELD-2011-FF-00838FF

PATIENT
  Sex: Female
  Weight: 68 kg

DRUGS (5)
  1. ACUPAN [Concomitant]
     Indication: PAIN
  2. PRADAXA [Suspect]
     Indication: KNEE ARTHROPLASTY
     Dosage: 150 MG
     Route: 048
  3. TRAMADOL HCL [Concomitant]
     Indication: PAIN
     Dosage: 300 MG
     Route: 042
  4. ACETAMINOPHEN [Concomitant]
     Indication: PAIN
     Dosage: 3 G
     Route: 042
  5. LEVOTHYROXINE SODIUM [Concomitant]

REACTIONS (1)
  - VENOUS THROMBOSIS LIMB [None]
